FAERS Safety Report 5912847-0 (Version None)
Quarter: 2008Q4

REPORT INFORMATION
  Report Type: 
  Country: None (occurrence: None)
  Receive Date: 20081003
  Receipt Date: 20080923
  Transmission Date: 20090506
  Serious: Yes (Other)
  Sender: FDA-Public Use
  Company Number: CHPA2008US16191

PATIENT
  Sex: Female

DRUGS (1)
  1. EX-LAX REG STR LAX PILLS SENNA (NCH) (SENNA GLYCOSIDES (CA SALTS OF PU [Suspect]
     Dosage: 60 MG, IN 5 HOURS, ORAL
     Route: 048
     Dates: start: 20080922, end: 20080922

REACTIONS (2)
  - INCORRECT DOSE ADMINISTERED [None]
  - LOSS OF CONSCIOUSNESS [None]
